FAERS Safety Report 11890298 (Version 6)
Quarter: 2016Q1

REPORT INFORMATION
  Report Type: Spontaneous
  Country: US (occurrence: US)
  Receive Date: 20160105
  Receipt Date: 20160329
  Transmission Date: 20160526
  Serious: Yes (Hospitalization)
  Sender: FDA-Public Use
  Company Number: US-GLAXOSMITHKLINE-US2015GSK184294

PATIENT
  Age: 95 Year
  Sex: Female

DRUGS (1)
  1. VENTOLIN HFA [Suspect]
     Active Substance: ALBUTEROL SULFATE
     Indication: PRODUCT USED FOR UNKNOWN INDICATION
     Dosage: 90 UG, UNK

REACTIONS (6)
  - Muscle strain [Unknown]
  - Accident [Unknown]
  - Product quality issue [Unknown]
  - Rehabilitation therapy [Unknown]
  - Emergency care [Unknown]
  - Physiotherapy [Unknown]

NARRATIVE: CASE EVENT DATE: 20151201
